FAERS Safety Report 6581853-8 (Version None)
Quarter: 2010Q1

REPORT INFORMATION
  Report Type: 
  Country: None (occurrence: None)
  Receive Date: 20100212
  Receipt Date: 20100212
  Transmission Date: 20100710
  Serious: No
  Sender: FDA-Public Use
  Company Number: None

PATIENT
  Age: 77 Year
  Sex: Male

DRUGS (1)
  1. TERAZOSIN HCL [Suspect]
     Dosage: 5 MG HS PO
     Route: 048
     Dates: start: 20090406, end: 20090712

REACTIONS (1)
  - HYPOTENSION [None]
